FAERS Safety Report 22527343 (Version 5)
Quarter: 2024Q1

REPORT INFORMATION
  Report Type: Report from Study
  Country: US (occurrence: US)
  Receive Date: 20230606
  Receipt Date: 20240130
  Transmission Date: 20240409
  Serious: No
  Sender: FDA-Public Use
  Company Number: US-002147023-NVSC2023US124699

PATIENT
  Age: 58 Year
  Sex: Female

DRUGS (2)
  1. KESIMPTA [Suspect]
     Active Substance: OFATUMUMAB
     Indication: Product used for unknown indication
     Dosage: 20 MG, QMO
     Route: 058
  2. KESIMPTA [Suspect]
     Active Substance: OFATUMUMAB
     Dosage: 20 MG, QMO (FIRST LOADING DOSE)
     Route: 058
     Dates: start: 20230528

REACTIONS (5)
  - Musculoskeletal stiffness [Recovered/Resolved]
  - Hyperhidrosis [Recovered/Resolved]
  - Injection site erythema [Recovered/Resolved]
  - Product administration error [Unknown]
  - Injection site erythema [Unknown]

NARRATIVE: CASE EVENT DATE: 20230529
